FAERS Safety Report 11858314 (Version 1)
Quarter: 2015Q4

REPORT INFORMATION
  Report Type: Spontaneous
  Country: US (occurrence: US)
  Receive Date: 20151222
  Receipt Date: 20151222
  Transmission Date: 20160305
  Serious: Yes (Other)
  Sender: FDA-Public Use
  Company Number: US-ACTAVIS-2015-28237

PATIENT
  Age: 72 Year
  Sex: Male

DRUGS (2)
  1. ONDANSETRON (UNKNOWN) [Suspect]
     Active Substance: ONDANSETRON
     Indication: NAUSEA
     Dosage: 4 MG, TOTAL
     Route: 042
  2. ONDANSETRON (UNKNOWN) [Suspect]
     Active Substance: ONDANSETRON
     Dosage: 4 MG, TOTAL
     Route: 042

REACTIONS (5)
  - Tachycardia [Recovered/Resolved]
  - Flushing [Recovered/Resolved]
  - Myoclonus [Recovered/Resolved]
  - Hypertension [Recovered/Resolved]
  - Extrapyramidal disorder [Recovered/Resolved]
